FAERS Safety Report 16489498 (Version 3)
Quarter: 2019Q3

REPORT INFORMATION
  Report Type: Spontaneous
  Country: BE (occurrence: BE)
  Receive Date: 20190628
  Receipt Date: 20190802
  Transmission Date: 20191004
  Serious: Yes (Hospitalization)
  Sender: FDA-Public Use
  Company Number: BE-SA-2019SA169792

PATIENT
  Age: 70 Year
  Sex: Male

DRUGS (9)
  1. FOLFOX [Concomitant]
     Active Substance: FLUOROURACIL\LEUCOVORIN CALCIUM\OXALIPLATIN
     Dosage: UNK
     Dates: start: 20190605
  2. ALLOPURINOL. [Concomitant]
     Active Substance: ALLOPURINOL
     Dosage: 150 MG, QD
     Route: 048
  3. ZOCOR [Concomitant]
     Active Substance: SIMVASTATIN
     Dosage: 40 MG, QD
     Route: 048
  4. AMLODIPINE [Concomitant]
     Active Substance: AMLODIPINE BESYLATE
     Dosage: 5 MG, QD
     Route: 048
  5. FLURACEDYL [FLUOROURACIL SODIUM] [Concomitant]
     Dosage: UNK
     Dates: start: 201803
  6. ELOXATIN [Suspect]
     Active Substance: OXALIPLATIN
     Indication: PRODUCT USED FOR UNKNOWN INDICATION
     Dosage: 123 MG, QOW
     Route: 042
     Dates: start: 201803, end: 201803
  7. VECTIBIX [Concomitant]
     Active Substance: PANITUMUMAB
     Dosage: UNK
     Route: 042
     Dates: start: 20190605
  8. BELSAR PLUS [Concomitant]
     Active Substance: HYDROCHLOROTHIAZIDE\OLMESARTAN MEDOXOMIL
     Dosage: 40 MG, QD
     Route: 048
  9. ELOXATIN [Suspect]
     Active Substance: OXALIPLATIN
     Dosage: 123 MG, QOW
     Route: 042
     Dates: start: 201806, end: 201806

REACTIONS (8)
  - Respiratory disorder [Recovered/Resolved with Sequelae]
  - Hypotension [Recovered/Resolved]
  - Hyperhidrosis [Recovered/Resolved]
  - Hypersensitivity [Recovered/Resolved]
  - Pruritus [Recovered/Resolved with Sequelae]
  - Loss of consciousness [Recovered/Resolved]
  - Oxygen saturation decreased [Recovered/Resolved]
  - Urinary incontinence [Recovered/Resolved]

NARRATIVE: CASE EVENT DATE: 20190619
